FAERS Safety Report 9740773 (Version 2)
Quarter: 2013Q4

REPORT INFORMATION
  Report Type: Spontaneous
  Country: GB (occurrence: GB)
  Receive Date: 20131209
  Receipt Date: 20131227
  Transmission Date: 20140711
  Serious: Yes (Other)
  Sender: FDA-Public Use
  Company Number: GB-PFIZER INC-2013349234

PATIENT
  Age: 23 Year
  Sex: Female

DRUGS (1)
  1. DEPO-PROVERA [Suspect]
     Indication: CONTRACEPTION
     Dosage: UNK, EVERY 12 WEEKS
     Route: 030
     Dates: start: 201209, end: 201212

REACTIONS (2)
  - Injection site atrophy [Not Recovered/Not Resolved]
  - Injection site pain [Not Recovered/Not Resolved]
